FAERS Safety Report 4589553-0 (Version None)
Quarter: 2005Q1

REPORT INFORMATION
  Report Type: 
  Country: None (occurrence: None)
  Receive Date: 20050217
  Receipt Date: 20050204
  Transmission Date: 20050727
  Serious: No
  Sender: FDA-Public Use
  Company Number: 05H-028-0289896-00

PATIENT

DRUGS (2)
  1. STERILE WATER FOR INJECTION, PRES.-FREE, USP, FT VIAL (STERILE WATER F [Suspect]
  2. PEGETRON [Suspect]
     Dosage: 150 MCG

REACTIONS (1)
  - STAPHYLOCOCCAL SEPSIS [None]
